FAERS Safety Report 21082371 (Version 1)
Quarter: 2022Q3

REPORT INFORMATION
  Report Type: Spontaneous
  Country: US (occurrence: US)
  Receive Date: 20220714
  Receipt Date: 20220714
  Transmission Date: 20221027
  Serious: Yes (Other)
  Sender: FDA-Public Use
  Company Number: US-SA-SAC00000000074200

PATIENT
  Sex: Male

DRUGS (1)
  1. ELOCTATE [Suspect]
     Active Substance: (1-743)-(1638-2332)-BLOOD-COAGULATION FACTOR VIII (SYNTHETIC HUMAN) FUSION PROTEIN WITH IMMUNOGLOBUL
     Dosage: 2000 UNITS Q 24 H PRN
     Route: 042

REACTIONS (6)
  - Haemorrhage [Not Recovered/Not Resolved]
  - Injury [Unknown]
  - Contusion [Unknown]
  - Joint injury [Unknown]
  - Fall [Unknown]
  - Limb injury [Unknown]

NARRATIVE: CASE EVENT DATE: 20220601
